FAERS Safety Report 10601526 (Version 1)
Quarter: 2014Q4

REPORT INFORMATION
  Report Type: Spontaneous
  Country: US (occurrence: US)
  Receive Date: 20141124
  Receipt Date: 20141124
  Transmission Date: 20150529
  Serious: Yes (Other)
  Sender: FDA-Public Use
  Company Number: US-PFIZER INC-2014321210

PATIENT
  Age: 23 Year
  Sex: Female
  Weight: 68.27 kg

DRUGS (8)
  1. LYRICA [Suspect]
     Active Substance: PREGABALIN
     Indication: NERVE INJURY
     Dosage: 50 MG, 3X/DAY
     Route: 048
     Dates: start: 201405, end: 2014
  2. DILAUDID [Concomitant]
     Active Substance: HYDROMORPHONE HYDROCHLORIDE
     Indication: PAIN
     Dosage: 2 MG, 2X/DAY
  3. LYRICA [Suspect]
     Active Substance: PREGABALIN
     Indication: NEURALGIA
     Dosage: 150 MG, 2X/DAY
     Route: 048
     Dates: start: 2014, end: 2014
  4. LYRICA [Suspect]
     Active Substance: PREGABALIN
     Indication: MYALGIA
     Dosage: 400 MG, 1X/DAY
     Route: 048
     Dates: start: 2014, end: 2014
  5. LYRICA [Suspect]
     Active Substance: PREGABALIN
     Dosage: 200 MG, 1X/DAY
     Route: 048
     Dates: start: 2014
  6. LYRICA [Suspect]
     Active Substance: PREGABALIN
     Dosage: ONE LESS AND THEN ONE LESS
     Route: 048
     Dates: start: 2014, end: 2014
  7. LYRICA [Suspect]
     Active Substance: PREGABALIN
     Indication: POSTOPERATIVE CARE
     Dosage: 300 MG, 2X/DAY
     Route: 048
     Dates: start: 2014, end: 2014
  8. OXYCONTIN [Concomitant]
     Active Substance: OXYCODONE HYDROCHLORIDE
     Indication: PAIN
     Dosage: 20 MG, 2X/DAY

REACTIONS (20)
  - Somnolence [Unknown]
  - Euphoric mood [Unknown]
  - Pneumonia [Unknown]
  - Restlessness [Unknown]
  - Speech disorder [Unknown]
  - Painful respiration [Unknown]
  - Dizziness [Unknown]
  - Migraine [Unknown]
  - Hot flush [Unknown]
  - Weight increased [Unknown]
  - Fatigue [Unknown]
  - Abdominal pain upper [Unknown]
  - Muscle spasms [Unknown]
  - Insomnia [Unknown]
  - Headache [Unknown]
  - Cold sweat [Unknown]
  - Malaise [Unknown]
  - Drug ineffective [Unknown]
  - Dyspnoea [Unknown]
  - Nausea [Unknown]

NARRATIVE: CASE EVENT DATE: 2014
